FAERS Safety Report 7298504-X (Version None)
Quarter: 2011Q1

REPORT INFORMATION
  Report Type: 
  Country: None (occurrence: None)
  Receive Date: 20110217
  Receipt Date: 20110208
  Transmission Date: 20110831
  Serious: Yes (Other)
  Sender: FDA-Public Use
  Company Number: JP-JNJFOC-20110204392

PATIENT
  Age: 72 Year
  Sex: Female

DRUGS (8)
  1. DIOVAN [Concomitant]
     Route: 065
  2. CINAL [Concomitant]
     Route: 065
  3. KENTAN [Suspect]
     Indication: JOINT SWELLING
     Route: 048
  4. JUVELA N [Concomitant]
     Route: 065
  5. CRAVIT [Suspect]
     Indication: CYSTITIS-LIKE SYMPTOM
     Route: 048
  6. MUCOSTA [Concomitant]
     Route: 065
  7. CLARUTE R [Concomitant]
     Route: 065
  8. RIZE [Concomitant]
     Route: 065

REACTIONS (2)
  - BLOOD PRESSURE INCREASED [None]
  - DYSAESTHESIA [None]
